FAERS Safety Report 22340434 (Version 3)
Quarter: 2023Q4

REPORT INFORMATION
  Report Type: Report from Study
  Country: US (occurrence: US)
  Receive Date: 20230518
  Receipt Date: 20231228
  Transmission Date: 20240109
  Serious: Yes (Other)
  Sender: FDA-Public Use
  Company Number: US-JAZZ-2023-US-002707

PATIENT
  Age: 33 Year
  Sex: Male

DRUGS (64)
  1. XYREM [Suspect]
     Active Substance: SODIUM OXYBATE
     Indication: Narcolepsy
     Dosage: 3.75 GRAM 1ST DOSE AND 3.5 GRAM 2ND DOSE
  2. XYREM [Suspect]
     Active Substance: SODIUM OXYBATE
     Indication: Cataplexy
     Dosage: 3.5 GRAM, BID
  3. XYREM [Suspect]
     Active Substance: SODIUM OXYBATE
     Indication: Somnolence
     Dosage: 3.75 GRAM 1ST DOSE AND 3.5 GRAM 2ND DOSE
  4. XYREM [Suspect]
     Active Substance: SODIUM OXYBATE
     Dosage: UNK
  5. XYREM [Suspect]
     Active Substance: SODIUM OXYBATE
     Dosage: 3.75 GRAM 1ST DOSE AND 3.5 GRAM 2ND DOSE
  6. XYREM [Suspect]
     Active Substance: SODIUM OXYBATE
     Dosage: UNK
  7. EPIPEN [Concomitant]
     Active Substance: EPINEPHRINE
     Indication: Product used for unknown indication
     Dosage: UNK
     Dates: start: 20151201
  8. TESTOSTERONE [Concomitant]
     Active Substance: TESTOSTERONE
     Indication: Product used for unknown indication
     Dosage: CYP 200 MG/ML
     Dates: start: 20151201
  9. TESTOSTERONE [Concomitant]
     Active Substance: TESTOSTERONE
     Dosage: 100 MG/ML
     Route: 030
  10. TESTOSTERONE [Concomitant]
     Active Substance: TESTOSTERONE
     Dosage: 100 MG/ML
     Route: 030
  11. TESTOSTERONE [Concomitant]
     Active Substance: TESTOSTERONE
     Dosage: 100 MG/ML
     Route: 030
  12. TESTOSTERONE [Concomitant]
     Active Substance: TESTOSTERONE
     Dosage: 100 MG/ML
     Route: 030
  13. SUDAFED 12 HOUR [Concomitant]
     Active Substance: PSEUDOEPHEDRINE HYDROCHLORIDE
     Indication: Product used for unknown indication
     Dosage: UNK
     Dates: start: 20160119
  14. IBUPROFEN [Concomitant]
     Active Substance: IBUPROFEN
     Indication: Product used for unknown indication
     Dosage: 200 MG CAPLET
     Dates: start: 20160119
  15. XOPENEX HFA [Concomitant]
     Active Substance: LEVALBUTEROL TARTRATE
     Indication: Product used for unknown indication
     Dosage: UNK
     Dates: start: 20211005
  16. CROMOLYN [Concomitant]
     Active Substance: CROMOLYN
     Indication: Product used for unknown indication
     Dosage: 100 MG/5 ML ORAL CONC
     Dates: start: 20220701
  17. CROMOLYN [Concomitant]
     Active Substance: CROMOLYN
     Dosage: 20 MG/ML ORAL SOLUTION
  18. CROMOLYN [Concomitant]
     Active Substance: CROMOLYN
     Dosage: 20 MG/ML ORAL SOLUTION
  19. CROMOLYN [Concomitant]
     Active Substance: CROMOLYN
     Dosage: 20 MG/ML ORAL SOLUTION
  20. CROMOLYN [Concomitant]
     Active Substance: CROMOLYN
     Dosage: 20 MG/ML ORAL SOLUTION
  21. COQ10 RX [Concomitant]
     Indication: Product used for unknown indication
     Dosage: UNK
     Route: 048
  22. COQ10 RX [Concomitant]
     Dosage: UNK
     Route: 048
  23. COQ10 RX [Concomitant]
     Dosage: UNK
     Route: 048
  24. COQ10 RX [Concomitant]
     Dosage: UNK
     Route: 048
  25. CROMOLYN SODIUM [Concomitant]
     Active Substance: CROMOLYN SODIUM
     Indication: Product used for unknown indication
     Dosage: UNK
  26. CROMOLYN SODIUM [Concomitant]
     Active Substance: CROMOLYN SODIUM
     Dosage: UNK
  27. CROMOLYN SODIUM [Concomitant]
     Active Substance: CROMOLYN SODIUM
     Dosage: UNK
  28. CROMOLYN SODIUM [Concomitant]
     Active Substance: CROMOLYN SODIUM
     Dosage: UNK
  29. VITA D3 [Concomitant]
     Indication: Product used for unknown indication
     Dosage: UNK
  30. VITA D3 [Concomitant]
     Dosage: UNK
  31. VITA D3 [Concomitant]
     Dosage: UNK
  32. VITA D3 [Concomitant]
     Dosage: UNK
  33. FINASTERIDE [Concomitant]
     Active Substance: FINASTERIDE
     Indication: Product used for unknown indication
     Dosage: UNK
     Route: 048
  34. FINASTERIDE [Concomitant]
     Active Substance: FINASTERIDE
     Dosage: UNK
     Route: 048
  35. FINASTERIDE [Concomitant]
     Active Substance: FINASTERIDE
     Dosage: UNK
     Route: 048
  36. FINASTERIDE [Concomitant]
     Active Substance: FINASTERIDE
     Dosage: UNK
     Route: 048
  37. FISH OIL [Concomitant]
     Active Substance: FISH OIL
     Indication: Product used for unknown indication
     Dosage: UNK
  38. FISH OIL [Concomitant]
     Active Substance: FISH OIL
     Dosage: UNK
  39. FISH OIL [Concomitant]
     Active Substance: FISH OIL
     Dosage: UNK
  40. FISH OIL [Concomitant]
     Active Substance: FISH OIL
     Dosage: UNK
  41. FLONASE ALLERGY RELIEF [Concomitant]
     Active Substance: FLUTICASONE PROPIONATE
     Indication: Product used for unknown indication
     Dosage: 50 MCG/INH
  42. FLONASE ALLERGY RELIEF [Concomitant]
     Active Substance: FLUTICASONE PROPIONATE
     Dosage: 50 MCG/INH
  43. FLONASE ALLERGY RELIEF [Concomitant]
     Active Substance: FLUTICASONE PROPIONATE
     Dosage: 50 MCG/INH
  44. FLONASE ALLERGY RELIEF [Concomitant]
     Active Substance: FLUTICASONE PROPIONATE
     Dosage: 50 MCG/INH
  45. HOMOCYSTEINE FORMULA [Concomitant]
     Indication: Product used for unknown indication
     Dosage: UNK
  46. HOMOCYSTEINE FORMULA [Concomitant]
     Dosage: UNK
  47. HOMOCYSTEINE FORMULA [Concomitant]
     Dosage: UNK
  48. HOMOCYSTEINE FORMULA [Concomitant]
     Dosage: UNK
  49. ICARIDIN [Concomitant]
     Active Substance: ICARIDIN
     Indication: Product used for unknown indication
     Dosage: 10 MILLIGRAM
  50. LUPRON [Concomitant]
     Active Substance: LEUPROLIDE ACETATE
     Indication: Product used for unknown indication
     Dosage: UNK
  51. LUPRON [Concomitant]
     Active Substance: LEUPROLIDE ACETATE
     Dosage: UNK
  52. LUPRON [Concomitant]
     Active Substance: LEUPROLIDE ACETATE
     Dosage: UNK
  53. LUPRON [Concomitant]
     Active Substance: LEUPROLIDE ACETATE
     Dosage: UNK
  54. PEPCID AC [Concomitant]
     Active Substance: FAMOTIDINE
     Indication: Product used for unknown indication
     Dosage: UNK UNK, QD
     Route: 048
  55. PEPCID AC [Concomitant]
     Active Substance: FAMOTIDINE
     Dosage: UNK UNK, QD
     Route: 048
  56. PEPCID AC [Concomitant]
     Active Substance: FAMOTIDINE
     Dosage: UNK UNK, QD
     Route: 048
  57. PEPCID AC [Concomitant]
     Active Substance: FAMOTIDINE
     Dosage: UNK UNK, QD
     Route: 048
  58. ASCORBIC ACID [Concomitant]
     Active Substance: ASCORBIC ACID
     Indication: Product used for unknown indication
     Dosage: UNK
  59. ASCORBIC ACID [Concomitant]
     Active Substance: ASCORBIC ACID
     Dosage: UNK
  60. ZADITOR [Concomitant]
     Active Substance: KETOTIFEN FUMARATE
     Indication: Product used for unknown indication
     Dosage: UNK
  61. ZADITOR [Concomitant]
     Active Substance: KETOTIFEN FUMARATE
     Dosage: UNK
  62. LORATADINE [Concomitant]
     Active Substance: LORATADINE
     Indication: Product used for unknown indication
     Dosage: 1 TABLET, QD
     Route: 048
  63. LORATADINE [Concomitant]
     Active Substance: LORATADINE
     Indication: Product used for unknown indication
     Dosage: 1 TABLET, QD
     Route: 048
  64. DOCUSATE SODIUM [Concomitant]
     Active Substance: DOCUSATE SODIUM
     Indication: Constipation
     Dosage: UNK
     Dates: start: 20231219

REACTIONS (6)
  - Mast cell activation syndrome [Unknown]
  - Atrial fibrillation [Unknown]
  - Surgery [Unknown]
  - Hypersensitivity [Unknown]
  - Pre-existing condition improved [Unknown]
  - Product administration interrupted [Unknown]

NARRATIVE: CASE EVENT DATE: 20220701
